FAERS Safety Report 5304155-6 (Version None)
Quarter: 2007Q2

REPORT INFORMATION
  Report Type: 
  Country: None (occurrence: None)
  Receive Date: 20070423
  Receipt Date: 20070409
  Transmission Date: 20071010
  Serious: Yes (Other)
  Sender: FDA-Public Use
  Company Number: PHBS2007BR06462

PATIENT
  Age: 24 Year
  Sex: Male

DRUGS (1)
  1. TEGRETOL [Suspect]
     Route: 048

REACTIONS (4)
  - ALOPECIA [None]
  - CONVULSION [None]
  - DYSPNOEA [None]
  - VISUAL DISTURBANCE [None]
